FAERS Safety Report 26176273 (Version 1)
Quarter: 2025Q4

REPORT INFORMATION
  Report Type: Spontaneous
  Country: US (occurrence: None)
  Receive Date: 20251218
  Receipt Date: 20251218
  Transmission Date: 20260117
  Serious: Yes (Life-Threatening)
  Sender: FDA-CTU
  Company Number: None

PATIENT
  Age: 49 Year
  Sex: Male
  Weight: 61.5 kg

DRUGS (1)
  1. CEFTRIAXONE SODIUM [Suspect]
     Active Substance: CEFTRIAXONE SODIUM
     Indication: Urinary tract infection
     Dosage: 2 G GRAM(S) DAILY INTRAVENOUS BOLUS
     Route: 040
     Dates: start: 20251203, end: 20251203

REACTIONS (2)
  - Anaphylactic shock [None]
  - Cardiac arrest [None]

NARRATIVE: CASE EVENT DATE: 20251203
